FAERS Safety Report 21467756 (Version 1)
Quarter: 2022Q4

REPORT INFORMATION
  Report Type: Spontaneous
  Country: US (occurrence: US)
  Receive Date: 20221017
  Receipt Date: 20221017
  Transmission Date: 20230112
  Serious: No
  Sender: FDA-Public Use
  Company Number: US-ALLERGAN-2215901US

PATIENT
  Sex: Male

DRUGS (8)
  1. LINZESS [Suspect]
     Active Substance: LINACLOTIDE
     Indication: Irritable bowel syndrome
     Dosage: 1 DF, QAM
     Route: 048
  2. FLEXERIL [Concomitant]
     Active Substance: CYCLOBENZAPRINE HYDROCHLORIDE
     Indication: Abdominal pain upper
     Dosage: UNK
     Dates: start: 202205
  3. METFORMIN [Concomitant]
     Active Substance: METFORMIN HYDROCHLORIDE
     Indication: Diabetes mellitus
     Dosage: 1000 MG, BID
     Route: 048
     Dates: start: 2012
  4. GLIMEPIRIDE [Concomitant]
     Active Substance: GLIMEPIRIDE
     Indication: Diabetes mellitus
     Dosage: 4 MG, BID
     Route: 048
     Dates: start: 2017
  5. JARDIANCE [Concomitant]
     Active Substance: EMPAGLIFLOZIN
     Indication: Diabetes mellitus
     Dosage: 25 MG, QD
     Route: 048
     Dates: start: 2020
  6. BISACODYL [Concomitant]
     Active Substance: BISACODYL
     Indication: Irritable bowel syndrome
     Dosage: 5MG, ONE TO THREE TABS EACH NIGHT
     Route: 048
     Dates: start: 2020
  7. DOCUSATE [Concomitant]
     Active Substance: DOCUSATE
     Indication: Irritable bowel syndrome
     Dosage: 50MG, 2-3 TABS NIGHTLY
     Route: 048
     Dates: start: 2020
  8. BENTYL [Concomitant]
     Active Substance: DICYCLOMINE HYDROCHLORIDE
     Indication: Abdominal pain upper

REACTIONS (1)
  - Therapeutic response decreased [Unknown]
